FAERS Safety Report 7447911-0 (Version None)
Quarter: 2011Q2

REPORT INFORMATION
  Report Type: 
  Country: None (occurrence: None)
  Receive Date: 20110429
  Receipt Date: 20100820
  Transmission Date: 20111010
  Serious: No
  Sender: FDA-Public Use
  Company Number: US-ASTRAZENECA-2007UW25970

PATIENT
  Age: 87 Year
  Sex: Male
  Weight: 72.6 kg

DRUGS (9)
  1. NEXIUM [Suspect]
     Route: 048
     Dates: start: 20050101
  2. NEXIUM [Suspect]
     Indication: BARRETT'S OESOPHAGUS
     Route: 048
     Dates: start: 20020101
  3. NEXIUM [Suspect]
     Route: 048
     Dates: start: 20050101
  4. ASPIRIN [Concomitant]
  5. NEXIUM [Suspect]
     Indication: GASTROOESOPHAGEAL REFLUX DISEASE
     Route: 048
     Dates: start: 20020101
  6. CORAG [Concomitant]
  7. ZESTRIL [Concomitant]
  8. HTZ [Concomitant]
  9. ZOCOR [Concomitant]

REACTIONS (1)
  - DYSGEUSIA [None]
